FAERS Safety Report 10160186 (Version 1)
Quarter: 2014Q2

REPORT INFORMATION
  Report Type: Spontaneous
  Country: US (occurrence: None)
  Receive Date: 20140507
  Receipt Date: 20140507
  Transmission Date: 20141212
  Serious: Yes (Other)
  Sender: FDA-Public Use
  Company Number: None

PATIENT
  Age: 38 Year
  Sex: Male
  Weight: 63.96 kg

DRUGS (4)
  1. METRONIDAZOLE [Suspect]
     Indication: CROHN^S DISEASE
     Route: 048
  2. METRONIDAZOLE [Suspect]
     Indication: FISTULA
     Route: 048
  3. AMOXICILLIN/CLAVULANIC ACID [Suspect]
     Indication: CROHN^S DISEASE
     Route: 048
  4. AMOXICILLIN/CLAVULANIC ACID [Suspect]
     Indication: FISTULA
     Route: 048

REACTIONS (6)
  - Urticaria [None]
  - Pruritus [None]
  - Dyspnoea [None]
  - Product quality issue [None]
  - Unevaluable event [None]
  - Drug dispensing error [None]
